FAERS Safety Report 10377533 (Version 3)
Quarter: 2014Q3

REPORT INFORMATION
  Report Type: Report from Study
  Country: JP (occurrence: JP)
  Receive Date: 20140812
  Receipt Date: 20140917
  Transmission Date: 20150326
  Serious: Yes (Hospitalization, Other)
  Sender: FDA-Public Use
  Company Number: PHHY2010JP02559

PATIENT
  Age: 86 Year
  Sex: Female
  Weight: 40 kg

DRUGS (6)
  1. PERMAX [Concomitant]
     Active Substance: PERGOLIDE
     Indication: PARKINSON^S DISEASE
     Dosage: 0.15 MG, UNK
     Route: 048
     Dates: start: 20080208, end: 20081110
  2. ENTACAPONE. [Suspect]
     Active Substance: ENTACAPONE
     Indication: DRUG EFFECT DECREASED
     Dosage: 300 MG, DAILY
     Route: 048
     Dates: start: 20081125
  3. DIHYDERGOT [Concomitant]
     Dosage: 3 MG, UNK
     Route: 048
     Dates: start: 20080313, end: 20090321
  4. LEVODOPA BENSERAZIDE HYDROCHLO [Concomitant]
     Indication: PARKINSON^S DISEASE
     Dosage: 300 MG, UNK
     Route: 048
     Dates: start: 20030910, end: 20090321
  5. GASMOTIN [Concomitant]
     Active Substance: MOSAPRIDE CITRATE
     Dosage: 15 MG, UNK
     Route: 048
     Dates: start: 20030910, end: 20090321
  6. LUVOX [Concomitant]
     Active Substance: FLUVOXAMINE MALEATE
     Dosage: 25 MG, UNK
     Route: 048
     Dates: start: 20050310, end: 20090321

REACTIONS (4)
  - Urinary tract infection [Unknown]
  - Pleural effusion [Unknown]
  - Femoral neck fracture [Unknown]
  - Fall [Unknown]

NARRATIVE: CASE EVENT DATE: 20090321
